FAERS Safety Report 9898441 (Version 1)
Quarter: 2014Q1

REPORT INFORMATION
  Report Type: Spontaneous
  Country: US (occurrence: US)
  Receive Date: 20140214
  Receipt Date: 20140214
  Transmission Date: 20141002
  Serious: Yes (Death)
  Sender: FDA-Public Use
  Company Number: US-PFIZER INC-2014041309

PATIENT
  Age: 65 Year
  Sex: Male

DRUGS (12)
  1. INLYTA [Suspect]
     Indication: RENAL CANCER
     Dosage: UNK, STRENGTH OF DOSAGE 5 MG
     Dates: start: 20131024
  2. ACCUPRIL [Concomitant]
     Dosage: UNK
  3. AMLODIPINE BESYLATE [Concomitant]
     Dosage: UNK
  4. ASPIRIN [Concomitant]
     Dosage: UNK
  5. ATENOLOL [Concomitant]
     Dosage: UNK
  6. CALCIUM MAGNESIUM ZINC [Concomitant]
     Dosage: UNK
  7. CALCIUM + VIT D [Concomitant]
     Dosage: UNK
  8. CRESTOR [Concomitant]
     Dosage: UNK
  9. DOXAZOSIN MESILATE [Concomitant]
     Dosage: UNK
  10. FENOFIBRIC ACID [Concomitant]
     Dosage: UNK
  11. FLUOXETINE HCL [Concomitant]
     Dosage: UNK
  12. IMODIUM ADVANCED [Concomitant]
     Dosage: UNK

REACTIONS (1)
  - Death [Fatal]
